FAERS Safety Report 6414493-1 (Version None)
Quarter: 2009Q4

REPORT INFORMATION
  Report Type: 
  Country: None (occurrence: None)
  Receive Date: 20091026
  Receipt Date: 20091013
  Transmission Date: 20100525
  Serious: Yes (Other)
  Sender: FDA-Public Use
  Company Number: NZ-ELI_LILLY_AND_COMPANY-NZ200910005767

PATIENT
  Age: 78 Year
  Sex: Male

DRUGS (4)
  1. PROZAC [Suspect]
     Indication: DEPRESSION
     Dosage: 20 MG, DAILY (1/D)
  2. FAMOTIDIN [Concomitant]
     Dosage: 80 MG, DAILY (1/D)
  3. DIPYRIDAMOL [Concomitant]
     Dosage: 50 MG, DAILY (1/D) FOR 6 MONTHS
  4. ASPIRIN [Concomitant]
     Dosage: 150 MG, DAILY (1/D) FOR 6 MONTHS

REACTIONS (1)
  - EXTRAPYRAMIDAL DISORDER [None]
